FAERS Safety Report 11619677 (Version 4)
Quarter: 2016Q1

REPORT INFORMATION
  Report Type: Report from Study
  Country: HU (occurrence: HU)
  Receive Date: 20151012
  Receipt Date: 20160311
  Transmission Date: 20160525
  Serious: Yes (Hospitalization)
  Sender: FDA-Public Use
  Company Number: HU-JNJFOC-20151001550

PATIENT
  Age: 73 Year
  Sex: Male
  Weight: 78 kg

DRUGS (29)
  1. BISOPROLOL [Concomitant]
     Active Substance: BISOPROLOL
     Indication: MYOCARDIAL ISCHAEMIA
     Route: 048
     Dates: start: 20150911
  2. FLUVASTATIN [Concomitant]
     Active Substance: FLUVASTATIN SODIUM
     Indication: HYPERLIPIDAEMIA
     Route: 048
     Dates: start: 200909
  3. THIOCTIC ACID [Concomitant]
     Active Substance: THIOCTIC ACID
     Indication: PAIN IN EXTREMITY
     Route: 048
     Dates: start: 201005
  4. VEROSPIRON [Concomitant]
     Active Substance: SPIRONOLACTONE
     Indication: ADVERSE EVENT
     Route: 048
     Dates: start: 20150515
  5. HUMULIN M3 [Concomitant]
     Active Substance: INSULIN HUMAN
     Route: 065
     Dates: start: 201502, end: 20150916
  6. CALCIUM DOBESILATE [Concomitant]
     Active Substance: CALCIUM DOBESILATE
     Indication: DIABETIC RETINOPATHY
     Route: 048
     Dates: start: 20120614
  7. KALDYUM [Concomitant]
     Active Substance: POTASSIUM CHLORIDE
     Indication: ADVERSE EVENT
     Route: 048
     Dates: start: 20150831
  8. METFORMIN [Concomitant]
     Active Substance: METFORMIN HYDROCHLORIDE
     Indication: HYPERGLYCAEMIA
     Route: 065
     Dates: start: 200903, end: 20150923
  9. IRBESARTAN. [Concomitant]
     Active Substance: IRBESARTAN
     Indication: HYPERTENSION
     Route: 048
     Dates: start: 20110506, end: 20110815
  10. HUMULIN M3 [Concomitant]
     Active Substance: INSULIN HUMAN
     Route: 065
     Dates: start: 20101103, end: 20110803
  11. HUMULIN M3 [Concomitant]
     Active Substance: INSULIN HUMAN
     Route: 065
     Dates: start: 20110804, end: 20110815
  12. HUMULIN M3 [Concomitant]
     Active Substance: INSULIN HUMAN
     Route: 065
     Dates: start: 20150917, end: 20150923
  13. ALLOPURINOL. [Concomitant]
     Active Substance: ALLOPURINOL
     Indication: HYPERURICAEMIA
     Route: 048
     Dates: start: 201407
  14. IVABRADINE [Concomitant]
     Active Substance: IVABRADINE
     Indication: MYOCARDIAL ISCHAEMIA
     Route: 048
     Dates: start: 20150702
  15. NITRODERM [Concomitant]
     Active Substance: NITROGLYCERIN
     Indication: MYOCARDIAL ISCHAEMIA
     Route: 062
     Dates: start: 200502
  16. PIRACETAM [Concomitant]
     Active Substance: PIRACETAM
     Indication: TRANSIENT ISCHAEMIC ATTACK
     Route: 048
     Dates: start: 200903
  17. FUROSEMID [Concomitant]
     Active Substance: FUROSEMIDE
     Indication: ADVERSE EVENT
     Route: 048
  18. CANAGLIFLOZIN [Suspect]
     Active Substance: CANAGLIFLOZIN
     Indication: TYPE 2 DIABETES MELLITUS
     Route: 048
     Dates: start: 20101104, end: 20150924
  19. HUMULIN M3 [Concomitant]
     Active Substance: INSULIN HUMAN
     Route: 065
     Dates: start: 20110816, end: 201502
  20. CLEXANE [Concomitant]
     Active Substance: ENOXAPARIN SODIUM
     Indication: CARDIOMYOPATHY
     Route: 058
     Dates: start: 20150831
  21. HUMULIN M3 [Concomitant]
     Active Substance: INSULIN HUMAN
     Route: 065
     Dates: start: 20090914, end: 20101102
  22. HUMULIN R [Concomitant]
     Active Substance: INSULIN HUMAN
     Route: 065
     Dates: start: 20150917
  23. BISOPROLOL [Concomitant]
     Active Substance: BISOPROLOL
     Indication: MYOCARDIAL ISCHAEMIA
     Route: 048
     Dates: start: 201407, end: 20150910
  24. HYDROCHLOORTHIAZIDE [Concomitant]
     Active Substance: HYDROCHLOROTHIAZIDE
     Route: 065
     Dates: end: 20150924
  25. CANAGLIFLOZIN [Suspect]
     Active Substance: CANAGLIFLOZIN
     Route: 048
  26. TRIMETAZIDINE [Concomitant]
     Active Substance: TRIMETAZIDINE
     Indication: MYOCARDIAL ISCHAEMIA
     Route: 048
     Dates: start: 201407
  27. HUMULIN M3 [Concomitant]
     Active Substance: INSULIN HUMAN
     Route: 065
     Dates: start: 20150924
  28. HUMULIN R [Concomitant]
     Active Substance: INSULIN HUMAN
     Route: 065
     Dates: start: 201502, end: 20150916
  29. IRBESARTAN. [Concomitant]
     Active Substance: IRBESARTAN
     Indication: HYPERTENSION
     Route: 048
     Dates: start: 20110816

REACTIONS (1)
  - Hyponatraemia [Recovered/Resolved]

NARRATIVE: CASE EVENT DATE: 20150922
